FAERS Safety Report 8495290-2 (Version None)
Quarter: 2012Q3

REPORT INFORMATION
  Report Type: 
  Country: None (occurrence: None)
  Receive Date: 20120702
  Receipt Date: 20120702
  Transmission Date: 20120928
  Serious: Yes (Other)
  Sender: FDA-Public Use
  Company Number: None

PATIENT
  Age: 70 Year
  Sex: Male
  Weight: 101 kg

DRUGS (2)
  1. DABIGATRAN, 150 MG, BOEHRINGER INGELHEIM [Suspect]
     Indication: ATRIAL FIBRILLATION
     Dosage: 150 MG, BID, PO
     Route: 048
     Dates: start: 20120608, end: 20120613
  2. DRONEDARONE HCL [Suspect]
     Dosage: 400 MG, BID, PO
     Route: 048
     Dates: start: 20120609, end: 20120613

REACTIONS (2)
  - ATRIAL FIBRILLATION [None]
  - HAEMATURIA [None]
